FAERS Safety Report 9385452 (Version 7)
Quarter: 2014Q4

REPORT INFORMATION
  Report Type: Spontaneous
  Country: US (occurrence: US)
  Receive Date: 20130705
  Receipt Date: 20141015
  Transmission Date: 20150529
  Serious: Yes (Hospitalization, Other)
  Sender: FDA-Public Use
  Company Number: US-009507513-1307USA001886

PATIENT
  Sex: Female
  Weight: 78.5 kg

DRUGS (7)
  1. FOSAMAX [Suspect]
     Active Substance: ALENDRONATE SODIUM
     Indication: OSTEOPOROSIS
     Dosage: UNK
     Route: 048
     Dates: start: 199510, end: 201010
  2. FOSAMAX [Suspect]
     Active Substance: ALENDRONATE SODIUM
     Dosage: 10 MG, UNK
     Route: 048
     Dates: start: 199801, end: 200201
  3. CITRICAL [Concomitant]
     Active Substance: CALCIUM CITRATE
     Dosage: UNK DF, VIT D 500MG/CA 600MG/4 A DAY
     Dates: start: 1990
  4. CENTRUM SILVER [Concomitant]
     Active Substance: VITAMINS
     Dosage: UNK DF, QD, 1 A DAY
     Dates: start: 1990
  5. SYNTHROID [Concomitant]
     Active Substance: LEVOTHYROXINE SODIUM
     Indication: THYROID DISORDER
     Dosage: 100 MICROGRAM, QD
     Dates: start: 1994
  6. RECLAST [Concomitant]
     Active Substance: ZOLEDRONIC ACID
     Indication: OSTEOPOROSIS
     Dosage: UNK
     Dates: start: 201001, end: 201105
  7. FOSAMAX [Suspect]
     Active Substance: ALENDRONATE SODIUM
     Dosage: 70 MG, UNK
     Route: 048
     Dates: start: 200201, end: 201010

REACTIONS (22)
  - Acetabulum fracture [Unknown]
  - Facial bones fracture [Unknown]
  - Fall [Unknown]
  - Mastectomy [Unknown]
  - Brain contusion [Recovered/Resolved]
  - Anaemia [Unknown]
  - Femur fracture [Recovered/Resolved]
  - Breast cancer [Unknown]
  - Simple mastectomy [Unknown]
  - Hypertension [Unknown]
  - Haemorrhagic anaemia [Unknown]
  - Osteoarthritis [Unknown]
  - Intraductal proliferative breast lesion [Unknown]
  - Face injury [Recovered/Resolved]
  - Breast cancer recurrent [Unknown]
  - Femur fracture [Recovered/Resolved]
  - Osteopenia [Unknown]
  - Blood cholesterol increased [Unknown]
  - Bacterial disease carrier [Unknown]
  - Intramedullary rod insertion [Unknown]
  - Fall [Unknown]
  - Back pain [Not Recovered/Not Resolved]

NARRATIVE: CASE EVENT DATE: 2000
